FAERS Safety Report 11094795 (Version 1)
Quarter: 2015Q2

REPORT INFORMATION
  Report Type: Spontaneous
  Country: US (occurrence: US)
  Receive Date: 20150506
  Receipt Date: 20150506
  Transmission Date: 20150821
  Serious: No
  Sender: FDA-Public Use
  Company Number: US-009507513-1505USA001216

PATIENT
  Age: 24 Year
  Sex: Female
  Weight: 60.77 kg

DRUGS (1)
  1. IMPLANON [Suspect]
     Active Substance: ETONOGESTREL
     Indication: CONTRACEPTION
     Dosage: UNK
     Route: 059
     Dates: start: 201103

REACTIONS (4)
  - Mood swings [Unknown]
  - Hypomenorrhoea [Unknown]
  - Incorrect drug administration duration [Unknown]
  - Menorrhagia [Unknown]

NARRATIVE: CASE EVENT DATE: 201403
